FAERS Safety Report 7129139-7 (Version None)
Quarter: 2010Q4

REPORT INFORMATION
  Report Type: 
  Country: None (occurrence: None)
  Receive Date: 20101130
  Receipt Date: 20101119
  Transmission Date: 20110411
  Serious: Yes (Other)
  Sender: FDA-Public Use
  Company Number: CHPA2010BR18040

PATIENT
  Age: 38 Year
  Sex: Female

DRUGS (1)
  1. BUFFERIN [Suspect]
     Indication: HEADACHE
     Dosage: 500 MG, FOR 15 YEARS WHEN PRESENTED WITH HEADACHE
     Route: 065

REACTIONS (1)
  - SINUSITIS [None]
